FAERS Safety Report 4730182-3 (Version None)
Quarter: 2005Q3

REPORT INFORMATION
  Report Type: 
  Country: None (occurrence: None)
  Receive Date: 20050801
  Receipt Date: 20050407
  Transmission Date: 20060218
  Serious: Yes (Other)
  Sender: FDA-Public Use
  Company Number: JP-GLAXOSMITHKLINE-B0378031A

PATIENT
  Age: 61 Year
  Sex: Male

DRUGS (3)
  1. HYCAMTIN [Suspect]
     Indication: SMALL CELL LUNG CANCER STAGE UNSPECIFIED
     Dosage: 1.5MGM2 PER DAY
     Route: 042
     Dates: start: 20040927, end: 20041001
  2. DEXAMETHASONE SODIUM PHOSPHATE [Concomitant]
     Dosage: 8MG PER DAY
     Route: 042
     Dates: start: 20040927, end: 20041001
  3. GRANISETRON  HCL [Concomitant]
     Indication: VOMITING
     Dosage: 3MG PER DAY
     Route: 042
     Dates: start: 20040927, end: 20041001

REACTIONS (6)
  - GRANULOCYTOPENIA [None]
  - HAEMOGLOBIN DECREASED [None]
  - INSOMNIA [None]
  - NEUTROPHIL COUNT DECREASED [None]
  - PLATELET COUNT DECREASED [None]
  - WHITE BLOOD CELL COUNT DECREASED [None]
